FAERS Safety Report 8232940-X (Version None)
Quarter: 2012Q1

REPORT INFORMATION
  Report Type: 
  Country: None (occurrence: None)
  Receive Date: 20120325
  Receipt Date: 20120314
  Transmission Date: 20120608
  Serious: Yes (Death, Life-Threatening, Hospitalization, Other)
  Sender: FDA-Public Use
  Company Number: US-MYLANLABS-2012S1006232

PATIENT
  Sex: Female

DRUGS (1)
  1. DIGOXIN [Suspect]
     Route: 048
     Dates: start: 20000314, end: 20060705

REACTIONS (4)
  - RESPIRATORY FAILURE [None]
  - RENAL FAILURE [None]
  - DEATH [None]
  - CARDIAC FAILURE CONGESTIVE [None]
